FAERS Safety Report 16140641 (Version 1)
Quarter: 2019Q2

REPORT INFORMATION
  Report Type: Spontaneous
  Country: US (occurrence: US)
  Receive Date: 20190401
  Receipt Date: 20190401
  Transmission Date: 20190711
  Serious: No
  Sender: FDA-Public Use
  Company Number: US-ARRAY-2019-05312

PATIENT

DRUGS (2)
  1. MEKTOVI [Suspect]
     Active Substance: BINIMETINIB
     Indication: SPINAL CORD COMPRESSION
     Dosage: 45 MG, BID
     Route: 048
     Dates: start: 20190104
  2. BRAFTOVI [Suspect]
     Active Substance: ENCORAFENIB
     Indication: SPINAL CORD COMPRESSION
     Dosage: 450 MG, QD
     Dates: start: 20190104

REACTIONS (2)
  - Product use in unapproved indication [Unknown]
  - Headache [Unknown]

NARRATIVE: CASE EVENT DATE: 20190104
